FAERS Safety Report 14157516 (Version 1)
Quarter: 2017Q4

REPORT INFORMATION
  Report Type: Spontaneous
  Country: US (occurrence: US)
  Receive Date: 20171103
  Receipt Date: 20171103
  Transmission Date: 20180321
  Serious: No
  Sender: FDA-Public Use
  Company Number: US-009507513-1710USA010339

PATIENT
  Age: 22 Year
  Sex: Female
  Weight: 66.67 kg

DRUGS (1)
  1. NEXPLANON [Suspect]
     Active Substance: ETONOGESTREL
     Indication: CONTRACEPTION
     Dosage: 68 MG (1 ROD) PER 3 YEARS
     Route: 059
     Dates: start: 20170510, end: 20171017

REACTIONS (2)
  - Implant site pain [Recovered/Resolved]
  - Device breakage [Recovered/Resolved]

NARRATIVE: CASE EVENT DATE: 2017
